FAERS Safety Report 6468622-4 (Version None)
Quarter: 2009Q4

REPORT INFORMATION
  Report Type: 
  Country: None (occurrence: None)
  Receive Date: 20091203
  Receipt Date: 20090820
  Transmission Date: 20100525
  Serious: Yes (Disabling, Other)
  Sender: FDA-Public Use
  Company Number: DE-ASTRAZENECA-2009SE10830

PATIENT
  Age: 67 Year
  Sex: Male

DRUGS (2)
  1. BELOC ZOK COMP [Suspect]
     Indication: MYOCARDIAL INFARCTION
     Route: 048
     Dates: start: 19900101
  2. ASPIRIN [Concomitant]

REACTIONS (2)
  - POLYNEUROPATHY [None]
  - WALKING DISABILITY [None]
